FAERS Safety Report 16545333 (Version 1)
Quarter: 2019Q3

REPORT INFORMATION
  Report Type: Spontaneous
  Country: US (occurrence: US)
  Receive Date: 20190708
  Receipt Date: 20190708
  Transmission Date: 20191004
  Serious: Yes (Other)
  Sender: FDA-Public Use
  Company Number: None

PATIENT
  Sex: Male

DRUGS (2)
  1. PANTOPRAZOLE SODIUM. [Suspect]
     Active Substance: PANTOPRAZOLE SODIUM
     Indication: PROPHYLAXIS
     Dosage: ?          QUANTITY:1 TABLET(S);OTHER FREQUENCY:PRIOR TO MEAL;?
     Route: 048
  2. PANTOPRAZOLE SODIUM. [Suspect]
     Active Substance: PANTOPRAZOLE SODIUM
     Indication: LUNG DISORDER
     Dosage: ?          QUANTITY:1 TABLET(S);OTHER FREQUENCY:PRIOR TO MEAL;?
     Route: 048

REACTIONS (3)
  - Gastrooesophageal reflux disease [None]
  - Product label issue [None]
  - Therapeutic product ineffective [None]

NARRATIVE: CASE EVENT DATE: 20190706
